FAERS Safety Report 20903852 (Version 2)
Quarter: 2022Q3

REPORT INFORMATION
  Report Type: Report from Study
  Country: CN (occurrence: CN)
  Receive Date: 20220602
  Receipt Date: 20220720
  Transmission Date: 20221026
  Serious: Yes (Other)
  Sender: FDA-Public Use
  Company Number: CN-BRISTOL-MYERS SQUIBB COMPANY-2022-046562

PATIENT
  Age: 77 Year
  Sex: Female

DRUGS (1)
  1. OPDIVO [Suspect]
     Active Substance: NIVOLUMAB
     Indication: Gastric cancer
     Route: 041
     Dates: start: 20220319

REACTIONS (4)
  - Asthenia [Unknown]
  - Fatigue [Unknown]
  - Arthropathy [Unknown]
  - Off label use [Unknown]

NARRATIVE: CASE EVENT DATE: 20220510
